FAERS Safety Report 13764617 (Version 1)
Quarter: 2017Q3

REPORT INFORMATION
  Report Type: Spontaneous
  Country: US (occurrence: US)
  Receive Date: 20170718
  Receipt Date: 20170718
  Transmission Date: 20171127
  Serious: No
  Sender: FDA-Public Use
  Company Number: US-BAUSCH-BL-2017-003971

PATIENT
  Age: 57 Year
  Sex: Male

DRUGS (1)
  1. XIFAXAN [Suspect]
     Active Substance: RIFAXIMIN
     Indication: HEPATIC FAILURE
     Route: 065
     Dates: end: 20170205

REACTIONS (6)
  - Amnesia [Unknown]
  - Blood glucose decreased [Unknown]
  - Drug dose omission [Unknown]
  - Dizziness [Unknown]
  - Drooling [Unknown]
  - Tremor [Unknown]

NARRATIVE: CASE EVENT DATE: 20170205
